FAERS Safety Report 6490727-2 (Version None)
Quarter: 2009Q4

REPORT INFORMATION
  Report Type: 
  Country: None (occurrence: None)
  Receive Date: 20091211
  Receipt Date: 20091203
  Transmission Date: 20100525
  Serious: Yes (Hospitalization)
  Sender: FDA-Public Use
  Company Number: B0613483A

PATIENT
  Age: 40 Year
  Sex: Female

DRUGS (5)
  1. ELONTRIL [Suspect]
     Dosage: 150MG PER DAY
     Route: 048
     Dates: start: 20090101, end: 20090101
  2. LAMICTAL [Suspect]
     Indication: DRUG USE FOR UNKNOWN INDICATION
     Dosage: 200MG PER DAY
     Route: 065
     Dates: start: 20070101
  3. CYMBALTA [Concomitant]
     Indication: DRUG USE FOR UNKNOWN INDICATION
     Dosage: 60MG PER DAY
     Route: 065
     Dates: start: 20070101
  4. LORAZEPAM [Concomitant]
     Indication: DRUG USE FOR UNKNOWN INDICATION
     Route: 065
     Dates: start: 20070101
  5. MIRTAZAPINE [Concomitant]
     Indication: DRUG USE FOR UNKNOWN INDICATION
     Route: 065

REACTIONS (5)
  - AGITATION [None]
  - DEPRESSION [None]
  - INSOMNIA [None]
  - OBSESSIVE-COMPULSIVE PERSONALITY DISORDER [None]
  - SUICIDAL IDEATION [None]
